FAERS Safety Report 15424637 (Version 1)
Quarter: 2018Q3

REPORT INFORMATION
  Report Type: Spontaneous
  Country: US (occurrence: US)
  Receive Date: 20180925
  Receipt Date: 20180925
  Transmission Date: 20181010
  Serious: No
  Sender: FDA-Public Use
  Company Number: US-AKRON, INC.-2055315

PATIENT

DRUGS (1)
  1. AK?FLUOR [Suspect]
     Active Substance: FLUORESCEIN SODIUM
     Route: 042

REACTIONS (1)
  - Drug ineffective [None]
